FAERS Safety Report 8270562-5 (Version None)
Quarter: 2012Q2

REPORT INFORMATION
  Report Type: 
  Country: None (occurrence: None)
  Receive Date: 20120410
  Receipt Date: 20120330
  Transmission Date: 20120825
  Serious: Yes (Hospitalization)
  Sender: FDA-Public Use
  Company Number: IT-BRISTOL-MYERS SQUIBB COMPANY-16426629

PATIENT
  Age: 79 Year
  Sex: Female

DRUGS (16)
  1. RAMIPRIL [Concomitant]
  2. ROSUVASTATIN [Concomitant]
  3. VALIUM [Concomitant]
  4. SIMVASTATIN [Concomitant]
     Route: 048
  5. LEVOTHYROXINE SODIUM [Concomitant]
     Dosage: NUMBER OF DOSES: 1
     Route: 048
  6. LEUCOVORIN CALCIUM [Concomitant]
  7. ALLOPURINOL [Concomitant]
     Route: 048
  8. COUMADIN [Suspect]
     Indication: CARDIAC VALVE PROSTHESIS USER
     Dosage: 1DF:1DOSE DRUG INTERRUPTED ON26JAN2012, 16FEB12
     Route: 048
     Dates: start: 19990101
  9. PROPAFENONE HCL [Concomitant]
     Dosage: NUMBER OF DOSES: 3
     Route: 048
  10. NITRODERM [Concomitant]
     Route: 062
  11. LASIX [Concomitant]
  12. BISOPROLOL FUMARATE [Concomitant]
     Route: 048
  13. NEXIUM [Concomitant]
     Dosage: NUMBER OF DOSES: 1
     Route: 048
  14. FERROGRAD C [Concomitant]
  15. CANDESARTAN CILEXETIL [Concomitant]
  16. MINITRAN [Concomitant]

REACTIONS (2)
  - ANAEMIA [None]
  - HYPOCOAGULABLE STATE [None]
